FAERS Safety Report 6899437-0 (Version None)
Quarter: 2010Q3

REPORT INFORMATION
  Report Type: 
  Country: None (occurrence: None)
  Receive Date: 20100803
  Receipt Date: 20090630
  Transmission Date: 20110219
  Serious: Yes (Hospitalization)
  Sender: FDA-Public Use
  Company Number: US-PFIZER INC-2009170660

PATIENT
  Sex: Female

DRUGS (3)
  1. NEURONTIN [Suspect]
  2. LISINOPRIL [Suspect]
  3. PROAIR HFA [Suspect]

REACTIONS (1)
  - BRONCHITIS [None]
